FAERS Safety Report 6173167-5 (Version None)
Quarter: 2009Q2

REPORT INFORMATION
  Report Type: 
  Country: None (occurrence: None)
  Receive Date: 20090430
  Receipt Date: 20090422
  Transmission Date: 20091009
  Serious: No
  Sender: FDA-Public Use
  Company Number: US-BAYER-200911293BCC

PATIENT
  Sex: Female

DRUGS (1)
  1. NEO-SYNEPHRINOL [Suspect]
     Indication: DRUG USE FOR UNKNOWN INDICATION
     Dates: start: 20090422

REACTIONS (1)
  - EYE IRRITATION [None]
